FAERS Safety Report 6812808-3 (Version None)
Quarter: 2010Q3

REPORT INFORMATION
  Report Type: 
  Country: None (occurrence: None)
  Receive Date: 20100701
  Receipt Date: 20100623
  Transmission Date: 20110219
  Serious: Yes (Death)
  Sender: FDA-Public Use
  Company Number: B0663157A

PATIENT
  Sex: Female
  Weight: 76 kg

DRUGS (6)
  1. ARIXTRA [Suspect]
     Indication: MYOCARDIAL INFARCTION
     Dosage: 2.5ML PER DAY
     Route: 058
     Dates: start: 20100616, end: 20100618
  2. ACETYLSALICYLIC ACID [Concomitant]
     Dosage: 300MG PER DAY
     Route: 065
  3. CLOPIDOGREL [Concomitant]
     Dosage: 75MG PER DAY
     Route: 065
  4. ATORVASTATIN [Concomitant]
     Route: 065
  5. BISOPROLOL FUMARATE [Concomitant]
     Dosage: 5MG PER DAY
     Route: 065
  6. PERINDOPRIL [Concomitant]
     Dosage: 2.5MG PER DAY
     Route: 065

REACTIONS (6)
  - CARDIAC FAILURE [None]
  - CARDIOGENIC SHOCK [None]
  - CORONARY ARTERY THROMBOSIS [None]
  - DRUG INEFFECTIVE [None]
  - EMBOLISM ARTERIAL [None]
  - MYOCARDIAL INFARCTION [None]
